FAERS Safety Report 9841541 (Version 4)
Quarter: 2014Q1

REPORT INFORMATION
  Report Type: Spontaneous
  Country: CH (occurrence: CH)
  Receive Date: 20140124
  Receipt Date: 20140210
  Transmission Date: 20141002
  Serious: Yes (Hospitalization)
  Sender: FDA-Public Use
  Company Number: CH-PFIZER INC-2014019554

PATIENT
  Age: 60 Year
  Sex: Male

DRUGS (48)
  1. METHOTREXATE SODIUM [Suspect]
     Indication: PROPHYLAXIS
     Dosage: 20 MG, SINGLE
     Route: 041
     Dates: start: 20131129, end: 20131129
  2. METHOTREXATE SODIUM [Suspect]
     Dosage: 20 MG, SINGLE
     Route: 041
     Dates: start: 20131202, end: 20131202
  3. SOLU-MEDROL [Suspect]
     Indication: PROPHYLAXIS
     Dosage: 80 MG, 1X/DAY
     Route: 041
     Dates: start: 20131122, end: 20131124
  4. DIFLUCAN [Suspect]
     Indication: PROPHYLAXIS
     Dosage: 400 MG, WEEKLY
     Route: 048
     Dates: start: 201311
  5. ATORVASTATIN CALCIUM [Suspect]
     Indication: HYPERLIPIDAEMIA
     Dosage: 20 MG, 1X/DAY
     Route: 048
     Dates: start: 20131118, end: 20131118
  6. TRIATEC [Suspect]
     Indication: ESSENTIAL HYPERTENSION
     Dosage: 2.5 MG, 1X/DAY
     Route: 048
     Dates: start: 20131122, end: 20131122
  7. TRIATEC [Suspect]
     Dosage: ALTERNATING 2.5 MG ONCE OR TWICE DAILY
     Route: 048
     Dates: start: 20131201
  8. SOLU-CORTEF [Suspect]
     Indication: PROPHYLAXIS
     Dosage: 100 MG, 1X/DAY
     Route: 041
     Dates: start: 20131128, end: 20131128
  9. TAZOBAC [Suspect]
     Indication: BACTERIAL INFECTION
     Dosage: 4.5 G, 3X/DAY
     Route: 041
     Dates: start: 20131129, end: 20131201
  10. PANTOZOL [Suspect]
     Indication: PROPHYLAXIS
     Dosage: 40 MG, 1X/DAY
     Route: 048
     Dates: start: 20131118, end: 20131201
  11. PANTOZOL [Suspect]
     Dosage: 20 MG, 1X/DAY
     Route: 048
     Dates: start: 20131202
  12. ENDOXAN [Suspect]
     Indication: PROPHYLAXIS
     Dosage: 5160 MG, 1X/DAY
     Route: 041
     Dates: start: 20131119, end: 20131120
  13. BUSILVEX [Suspect]
     Indication: PROPHYLAXIS
     Dosage: 69 MG, 2X/DAY
     Route: 041
     Dates: start: 20131121, end: 20131124
  14. ATG-FRESENIUS [Suspect]
     Indication: PROPHYLAXIS
     Dosage: 500 MG TWICE
     Route: 041
     Dates: start: 20131122, end: 20131124
  15. SANDIMMUN [Suspect]
     Indication: PROPHYLAXIS
     Dosage: 325 MG, 1X/DAY
     Route: 041
     Dates: start: 20131201
  16. SANDIMMUN [Suspect]
     Dosage: 275 MG, 1X/DAY
     Route: 041
     Dates: start: 20131127, end: 20131130
  17. SANDIMMUN [Suspect]
     Dosage: 250 MG, 1X/DAY
     Route: 041
     Dates: start: 20131124, end: 20131126
  18. AMIKIN [Suspect]
     Indication: BACTERIAL INFECTION
     Dosage: 500 MG, 2X/DAY
     Route: 041
     Dates: start: 20131123, end: 20131125
  19. NOPIL [Suspect]
     Indication: PROPHYLAXIS
     Dosage: 1 DF 3XWEEK
     Route: 048
     Dates: start: 201311
  20. CEFEPIME [Suspect]
     Indication: BACTERIAL INFECTION
     Dosage: 2 G, 3X/DAY
     Route: 041
     Dates: start: 20131123, end: 20131129
  21. VALTREX [Suspect]
     Indication: PROPHYLAXIS
     Dosage: 500 MG, 2X/DAY
     Route: 048
     Dates: start: 20131118
  22. LASIX [Suspect]
     Indication: DIURETIC THERAPY
     Dosage: 20 MG, 1X/DAY
     Route: 041
     Dates: start: 20131119, end: 20131203
  23. LASIX [Suspect]
     Dosage: 40 MG, 1X/DAY
     Route: 041
     Dates: start: 20131204
  24. ZYLORIC [Suspect]
     Indication: GOUT
     Dosage: 300 MG, 1X/DAY
     Route: 048
     Dates: start: 20131118, end: 20131126
  25. ALOXI [Suspect]
     Indication: NAUSEA
     Dosage: 0.25 MG, 1X/DAY
     Route: 041
     Dates: start: 20131119, end: 20131119
  26. ALOXI [Suspect]
     Indication: VOMITING
  27. UROMITEXAN [Suspect]
     Indication: PROPHYLAXIS
     Dosage: 3X800MG AND 2X400MG
     Route: 041
     Dates: start: 20131119, end: 20131120
  28. UROMITEXAN [Suspect]
     Dosage: 3X400MG
     Route: 041
     Dates: start: 20131121, end: 20131121
  29. EMEND [Suspect]
     Indication: NAUSEA
     Dosage: 125 MG, 1X/DAY
     Route: 041
     Dates: start: 20131119, end: 20131119
  30. EMEND [Suspect]
     Indication: VOMITING
     Dosage: 80 MG, 1X/DAY
     Route: 041
     Dates: start: 20131120, end: 20131128
  31. MERONEM [Suspect]
     Indication: BACTERIAL INFECTION
     Dosage: 1 G, 3X/DAY
     Route: 041
     Dates: start: 20131202
  32. ZOVIRAX [Suspect]
     Indication: PROPHYLAXIS
     Dosage: 250 MG, 1X/DAY
     Route: 041
     Dates: start: 20131201, end: 20131201
  33. ZOVIRAX [Suspect]
     Dosage: 500 MG, 2X/DAY
     Route: 041
     Dates: start: 20131202, end: 20131202
  34. ASPIRIN [Suspect]
     Indication: PROPHYLAXIS
     Dosage: 100 MG, 1X/DAY
     Route: 048
     Dates: start: 20131118, end: 20131122
  35. FLAMON [Suspect]
     Indication: ESSENTIAL HYPERTENSION
     Dosage: 120 MG, 2X/DAY
     Route: 048
     Dates: start: 20131118, end: 20131127
  36. FLAMON [Suspect]
     Dosage: 120 MG, 3X/DAY
     Route: 048
     Dates: start: 20131128, end: 20131202
  37. TRANDATE [Suspect]
     Indication: ESSENTIAL HYPERTENSION
     Dosage: 200 MG, SINGLE
     Route: 041
     Dates: start: 20131201, end: 20131201
  38. TRANDATE [Suspect]
     Dosage: 200 MG, SINGLE
     Route: 041
     Dates: start: 20131203, end: 20131203
  39. TAVEGYL [Concomitant]
     Dosage: UNK
  40. FORTECORTIN [Concomitant]
  41. HEPARIN [Concomitant]
  42. PASPERTIN [Concomitant]
  43. SIMETICONE [Concomitant]
  44. DUSPATALIN [Concomitant]
  45. LAXOBERON [Concomitant]
  46. LEUCOVORIN [Concomitant]
  47. URSOFALK [Concomitant]
  48. DEFIBROTIDE [Concomitant]

REACTIONS (9)
  - Drug-induced liver injury [Recovering/Resolving]
  - Blood bilirubin increased [Recovering/Resolving]
  - Jaundice [Recovering/Resolving]
  - Haemolysis [Unknown]
  - Hepatic enzyme increased [Recovering/Resolving]
  - Aspartate aminotransferase increased [Recovering/Resolving]
  - Alanine aminotransferase increased [Recovering/Resolving]
  - Cholestasis [Recovering/Resolving]
  - Blood alkaline phosphatase increased [Recovering/Resolving]
